FAERS Safety Report 19519462 (Version 1)
Quarter: 2021Q3

REPORT INFORMATION
  Report Type: Spontaneous
  Country: US (occurrence: US)
  Receive Date: 20210712
  Receipt Date: 20210712
  Transmission Date: 20211014
  Serious: Yes (Other)
  Sender: FDA-Public Use
  Company Number: None

PATIENT
  Age: 84 Year
  Sex: Male
  Weight: 109.21 kg

DRUGS (22)
  1. BIOFREEZE [Concomitant]
     Active Substance: MENTHOL
  2. MVI [Concomitant]
     Active Substance: VITAMINS
  3. INLYTA [Suspect]
     Active Substance: AXITINIB
     Indication: RENAL DISORDER
     Route: 048
     Dates: start: 20210323
  4. CALCIUM [Concomitant]
     Active Substance: CALCIUM
  5. FLEET ENEMA [Concomitant]
     Active Substance: SODIUM PHOSPHATE, DIBASIC\SODIUM PHOSPHATE, MONOBASIC
  6. 5 ? HYDROXYTRUPTOPHAN [Concomitant]
  7. ASPIRIN. [Concomitant]
     Active Substance: ASPIRIN
  8. HEPARIN [Concomitant]
     Active Substance: HEPARIN SODIUM
  9. LEVOTHYROXINE. [Concomitant]
     Active Substance: LEVOTHYROXINE
  10. METOPROLOL. [Concomitant]
     Active Substance: METOPROLOL
  11. NAPROXEN. [Concomitant]
     Active Substance: NAPROXEN
  12. HYDROXYZINE [Concomitant]
     Active Substance: HYDROXYZINE HYDROCHLORIDE
  13. NITROGLYCERIN. [Concomitant]
     Active Substance: NITROGLYCERIN
  14. ACETAMINOPHEN. [Concomitant]
     Active Substance: ACETAMINOPHEN
  15. ASPERCREME NOS [Concomitant]
     Active Substance: MENTHOL\TROLAMINE SALICYLATE
  16. DULCOLAX NOS [Concomitant]
     Active Substance: BISACODYL OR DOCUSATE SODIUM
  17. FLUTICASONE. [Concomitant]
     Active Substance: FLUTICASONE
  18. LINZESS [Concomitant]
     Active Substance: LINACLOTIDE
  19. CLONAZEPAM. [Concomitant]
     Active Substance: CLONAZEPAM
  20. DONEPEZIL. [Concomitant]
     Active Substance: DONEPEZIL
  21. FENTANYL. [Concomitant]
     Active Substance: FENTANYL
  22. MIRTAZAPINE. [Concomitant]
     Active Substance: MIRTAZAPINE

REACTIONS (1)
  - Hospice care [None]

NARRATIVE: CASE EVENT DATE: 20210712
